FAERS Safety Report 7628542-6 (Version None)
Quarter: 2011Q3

REPORT INFORMATION
  Report Type: 
  Country: None (occurrence: None)
  Receive Date: 20110722
  Receipt Date: 20110714
  Transmission Date: 20111222
  Serious: Yes (Other)
  Sender: FDA-Public Use
  Company Number: ES-ASTELLAS-2011US003968

PATIENT
  Age: 77 Year
  Sex: Female

DRUGS (5)
  1. DEXKETOPROFEN [Concomitant]
     Indication: PAIN
     Dosage: 150 MG, UID/QD
     Route: 042
     Dates: start: 20101215, end: 20110120
  2. PIPERACILLIN AND TAZOBACTAM [Suspect]
     Indication: BACTERIAL INFECTION
     Dosage: 12 G, TID
     Route: 042
     Dates: start: 20110131, end: 20110217
  3. TRAMADOL HCL [Concomitant]
     Indication: PAIN
     Dosage: 300 MG, TID
     Route: 042
     Dates: start: 20101215, end: 20110130
  4. ACETAMINOPHEN [Concomitant]
     Indication: PAIN
     Dosage: 3 G, TID
     Route: 042
     Dates: start: 20101212
  5. AMBISOME [Suspect]
     Indication: FUNGAL INFECTION
     Dosage: 150 MG, UID/QD
     Route: 042
     Dates: start: 20110127, end: 20110210

REACTIONS (1)
  - HEPATITIS CHOLESTATIC [None]
